FAERS Safety Report 7150976-7 (Version None)
Quarter: 2010Q4

REPORT INFORMATION
  Report Type: 
  Country: None (occurrence: None)
  Receive Date: 20101210
  Receipt Date: 20101129
  Transmission Date: 20110411
  Serious: Yes (Hospitalization, Congenital Anomaly)
  Sender: FDA-Public Use
  Company Number: A0898672A

PATIENT
  Sex: Male

DRUGS (2)
  1. PAXIL [Suspect]
     Indication: PANIC DISORDER
  2. PAROXETINE HCL [Suspect]
     Indication: PANIC DISORDER

REACTIONS (2)
  - DIVERTICULUM [None]
  - DRUG EXPOSURE DURING PREGNANCY [None]
